FAERS Safety Report 25884363 (Version 1)
Quarter: 2025Q4

REPORT INFORMATION
  Report Type: Report from Study
  Country: EU (occurrence: EU)
  Receive Date: 20251006
  Receipt Date: 20251006
  Transmission Date: 20260118
  Serious: Yes (Death, Hospitalization, Other)
  Sender: MYLAN
  Company Number: EU-MYLANLABS-2025M1081657

PATIENT

DRUGS (3)
  1. CLOZAPINE [Suspect]
     Active Substance: CLOZAPINE
     Indication: Schizophrenia
     Dosage: UNK, QD (THREE-WEEK TITRATION SCHEDULE UP TO 300MG [PER DAY])
     Dates: start: 201602
  2. CLOZAPINE [Suspect]
     Active Substance: CLOZAPINE
     Dosage: 250 MILLIGRAM, QD
     Dates: start: 2016
  3. RISPERIDONE [Concomitant]
     Active Substance: RISPERIDONE
     Indication: Schizophrenia
     Dosage: UNK

REACTIONS (7)
  - Eosinophilic myocarditis [Fatal]
  - Hospitalisation [Unknown]
  - Heart rate increased [Unknown]
  - Eosinophil count increased [Unknown]
  - Sinus tachycardia [Unknown]
  - Electrocardiogram T wave abnormal [Unknown]
  - Off label use [Unknown]

NARRATIVE: CASE EVENT DATE: 20160101
